FAERS Safety Report 22633658 (Version 3)
Quarter: 2023Q4

REPORT INFORMATION
  Report Type: Spontaneous
  Country: US (occurrence: US)
  Receive Date: 20230623
  Receipt Date: 20231011
  Transmission Date: 20240110
  Serious: Yes (Disabling, Other)
  Sender: FDA-Public Use
  Company Number: US-009507513-2203USA008294

PATIENT
  Sex: Female
  Weight: 48.073 kg

DRUGS (11)
  1. REMERON [Suspect]
     Active Substance: MIRTAZAPINE
     Dosage: UNK
     Route: 048
  2. GARDASIL 9 [Suspect]
     Active Substance: HUMAN PAPILLOMAVIRUS TYPE 11 L1 CAPSID PROTEIN ANTIGEN\HUMAN PAPILLOMAVIRUS TYPE 16 L1 CAPSID PROTEI
     Indication: Prophylaxis
     Dosage: 0.5 MILLILITER
     Route: 065
     Dates: start: 20170719
  3. TOPAMAX [Suspect]
     Active Substance: TOPIRAMATE
     Dosage: UNK
     Dates: start: 2017
  4. AMITRIPTYLINE [Suspect]
     Active Substance: AMITRIPTYLINE
     Dosage: UNK
     Dates: start: 2017
  5. TOPROL XL [Suspect]
     Active Substance: METOPROLOL SUCCINATE
     Dosage: UNK
  6. ZONEGRAN [Suspect]
     Active Substance: ZONISAMIDE
     Dosage: UNK
  7. CLONIDINE [Suspect]
     Active Substance: CLONIDINE
     Dosage: UNK
  8. HYDROXYZINE [Suspect]
     Active Substance: HYDROXYZINE HYDROCHLORIDE
     Dosage: UNK
  9. WELLBUTRIN [Suspect]
     Active Substance: BUPROPION HYDROCHLORIDE
     Dosage: UNK
  10. VARIVAX [Suspect]
     Active Substance: VARICELLA-ZOSTER VIRUS STRAIN OKA/MERCK LIVE ANTIGEN
     Indication: Prophylaxis
     Dosage: UNK
  11. MELATONIN [Suspect]
     Active Substance: MELATONIN
     Dosage: UNK

REACTIONS (88)
  - Blood glucose abnormal [Not Recovered/Not Resolved]
  - Inflammatory bowel disease [Not Recovered/Not Resolved]
  - Coeliac disease [Unknown]
  - Peptic ulcer [Unknown]
  - Neuropathy peripheral [Not Recovered/Not Resolved]
  - Adrenal insufficiency [Not Recovered/Not Resolved]
  - Hallucination [Not Recovered/Not Resolved]
  - Autoimmune disorder [Not Recovered/Not Resolved]
  - Metal poisoning [Unknown]
  - Loss of consciousness [Unknown]
  - Diabetes mellitus [Unknown]
  - Loss of consciousness [Unknown]
  - Autism spectrum disorder [Unknown]
  - Bone disorder [Not Recovered/Not Resolved]
  - Hormone level abnormal [Not Recovered/Not Resolved]
  - Postural orthostatic tachycardia syndrome [Not Recovered/Not Resolved]
  - Drug ineffective [Unknown]
  - Cerumen impaction [Recovered/Resolved]
  - Eosinophilic oesophagitis [Unknown]
  - Fungal infection [Unknown]
  - Gastritis [Unknown]
  - Helicobacter infection [Recovered/Resolved]
  - Oral pruritus [Unknown]
  - Stress [Unknown]
  - Visual impairment [Recovered/Resolved]
  - Lymphatic insufficiency [Not Recovered/Not Resolved]
  - Intestinal barrier dysfunction [Not Recovered/Not Resolved]
  - Reflux gastritis [Not Recovered/Not Resolved]
  - Panic attack [Not Recovered/Not Resolved]
  - Musculoskeletal stiffness [Not Recovered/Not Resolved]
  - Ligamentitis [Not Recovered/Not Resolved]
  - Tendonitis [Not Recovered/Not Resolved]
  - Sensory overload [Not Recovered/Not Resolved]
  - Thyroid disorder [Not Recovered/Not Resolved]
  - Muscle spasms [Not Recovered/Not Resolved]
  - Muscle tightness [Not Recovered/Not Resolved]
  - Uterine spasm [Not Recovered/Not Resolved]
  - Trichotillomania [Not Recovered/Not Resolved]
  - Anxiety disorder [Recovering/Resolving]
  - Depression [Not Recovered/Not Resolved]
  - Hypermobility syndrome [Not Recovered/Not Resolved]
  - COVID-19 [Unknown]
  - Blood iron decreased [Unknown]
  - Medication overuse headache [Recovered/Resolved]
  - Serum ferritin decreased [Unknown]
  - Vitamin D deficiency [Unknown]
  - Albumin globulin ratio increased [Unknown]
  - Liver function test increased [Unknown]
  - Endometriosis [Not Recovered/Not Resolved]
  - Rhinorrhoea [Unknown]
  - Acute sinusitis [Unknown]
  - Urine output decreased [Unknown]
  - Hypotension [Unknown]
  - Cough [Unknown]
  - Rash [Not Recovered/Not Resolved]
  - Migraine [Unknown]
  - Allergy to vaccine [Unknown]
  - Myalgia [Not Recovered/Not Resolved]
  - Oropharyngeal pain [Unknown]
  - Weight fluctuation [Unknown]
  - Viral infection [Unknown]
  - Mass [Unknown]
  - Myofascial pain syndrome [Unknown]
  - Attention deficit hyperactivity disorder [Unknown]
  - Irritable bowel syndrome [Unknown]
  - Tic [Unknown]
  - Hypermetropia [Unknown]
  - Drug ineffective [Unknown]
  - Somnolence [Unknown]
  - Heart rate increased [Unknown]
  - Weight decreased [Unknown]
  - Insomnia [Unknown]
  - Thoracic outlet syndrome [Unknown]
  - Illness [Unknown]
  - Therapeutic response unexpected [Unknown]
  - Chest pain [Recovered/Resolved]
  - Scoliosis [Unknown]
  - Nightmare [Unknown]
  - Urinary tract infection [Unknown]
  - Influenza [Unknown]
  - Acne [Unknown]
  - Dysphagia [Unknown]
  - Ear pain [Unknown]
  - Adverse drug reaction [Unknown]
  - Ovarian cyst [Unknown]
  - Peripheral venous disease [Unknown]
  - Tonsillectomy [Unknown]
  - Amenorrhoea [Unknown]

NARRATIVE: CASE EVENT DATE: 20170101
